FAERS Safety Report 10581290 (Version 2)
Quarter: 2014Q4

REPORT INFORMATION
  Report Type: Spontaneous
  Country: BR (occurrence: BR)
  Receive Date: 20141113
  Receipt Date: 20141229
  Transmission Date: 20150529
  Serious: Yes (Other)
  Sender: FDA-Public Use
  Company Number: BR-JNJFOC-20141020918

PATIENT
  Age: 56 Year
  Sex: Female
  Weight: 48 kg

DRUGS (4)
  1. MONURIL [Suspect]
     Active Substance: FOSFOMYCIN SODIUM
     Indication: CYSTITIS
     Dosage: INGESTED ONLY ONE ENVELOPE
     Route: 048
     Dates: start: 201312
  2. HALDOL [Suspect]
     Active Substance: HALOPERIDOL
     Indication: PRODUCT USED FOR UNKNOWN INDICATION
     Route: 065
     Dates: start: 1984
  3. BIPERIDEN [Concomitant]
     Active Substance: BIPERIDEN
     Indication: TREMOR
     Route: 065
     Dates: start: 1984
  4. LEVOTHYROXINE SODIUM. [Concomitant]
     Active Substance: LEVOTHYROXINE SODIUM
     Indication: HORMONE REPLACEMENT THERAPY
     Route: 065
     Dates: start: 1958

REACTIONS (10)
  - Tongue disorder [Recovered/Resolved]
  - Abnormal behaviour [Recovered/Resolved]
  - Dizziness [Recovered/Resolved]
  - Crying [Recovered/Resolved]
  - Tremor [Not Recovered/Not Resolved]
  - Anaphylactic shock [Recovered/Resolved]
  - Cystitis [Unknown]
  - Gastrointestinal disorder [Not Recovered/Not Resolved]
  - Agitation [Not Recovered/Not Resolved]
  - Anxiety [Recovered/Resolved]

NARRATIVE: CASE EVENT DATE: 1984
